FAERS Safety Report 7995251 (Version 3)
Quarter: 2012Q4

REPORT INFORMATION
  Report Type: Report from Study
  Country: US (occurrence: US)
  Receive Date: 20110617
  Receipt Date: 20120925
  Transmission Date: 20130627
  Serious: Yes (Hospitalization)
  Sender: FDA-Public Use
  Company Number: US-BRISTOL-MYERS SQUIBB COMPANY-15838006

PATIENT
  Age: 73 Year
  Sex: Male
  Weight: 73 kg

DRUGS (3)
  1. ERBITUX [Suspect]
     Indication: OESOPHAGEAL CARCINOMA
     Dosage: Last admins on 6Jun11,total of 6 doses
Total dose: 3222 mg
     Dates: start: 20110502, end: 20110606
  2. CISPLATIN [Suspect]
     Indication: OESOPHAGEAL CARCINOMA
     Dosage: Last admins on 6Jun11,total of 6 doses
Total dose: 234 mg
     Dates: start: 20110502, end: 20110606
  3. TAXOL [Suspect]
     Indication: OESOPHAGEAL CARCINOMA
     Dosage: Last admins on 6Jun11,total of 6 doses
Total dose: 576 mg
     Dates: start: 20110502, end: 20110606

REACTIONS (2)
  - Dysphagia [Recovered/Resolved]
  - Mucosal inflammation [Recovered/Resolved]
